FAERS Safety Report 6729126-4 (Version None)
Quarter: 2010Q2

REPORT INFORMATION
  Report Type: 
  Country: None (occurrence: None)
  Receive Date: 20100517
  Receipt Date: 20100408
  Transmission Date: 20101027
  Serious: No
  Sender: FDA-Public Use
  Company Number: US-ABBOTT-10P-163-0637358-00

PATIENT
  Sex: Male
  Weight: 93.07 kg

DRUGS (8)
  1. SIMCOR [Suspect]
     Indication: HYPERLIPIDAEMIA
     Dosage: 4-500MG/20MG TABS EVERY NIGHT
     Route: 048
     Dates: start: 20090401
  2. SIMCOR [Suspect]
     Dosage: 2-500MG/20MG EVERY NIGHT
     Route: 048
  3. COUMADIN [Concomitant]
     Indication: DRUG USE FOR UNKNOWN INDICATION
     Dosage: TAKEN AS DIRECTED
  4. GENUVIA [Concomitant]
     Indication: DRUG USE FOR UNKNOWN INDICATION
     Dosage: TAKEN AS DIRECTED
  5. DIABETES MEDICATION [Concomitant]
     Indication: DIABETES MELLITUS
     Dosage: TAKEN AS DIRECTED
  6. VALIUM [Concomitant]
     Indication: DRUG USE FOR UNKNOWN INDICATION
  7. PROSTATE MEDICATION [Concomitant]
     Indication: DRUG USE FOR UNKNOWN INDICATION
  8. BLOOD PRESSURE MEDICATION [Concomitant]
     Indication: HYPERTENSION

REACTIONS (1)
  - FLUSHING [None]
